FAERS Safety Report 7922028-7 (Version None)
Quarter: 2011Q4

REPORT INFORMATION
  Report Type: 
  Country: None (occurrence: None)
  Receive Date: 20111117
  Receipt Date: 20111109
  Transmission Date: 20120403
  Serious: Yes (Other)
  Sender: FDA-Public Use
  Company Number: US-ASTRAZENECA-2011SE68172

PATIENT
  Age: 89 Year
  Sex: Female

DRUGS (1)
  1. BRILINTA [Suspect]
     Indication: CARDIOVASCULAR EVENT PROPHYLAXIS
     Route: 048
     Dates: start: 20111106

REACTIONS (1)
  - ATRIOVENTRICULAR BLOCK COMPLETE [None]
